FAERS Safety Report 15750175 (Version 1)
Quarter: 2018Q4

REPORT INFORMATION
  Report Type: Spontaneous
  Country: US (occurrence: US)
  Receive Date: 20181205
  Receipt Date: 20181205
  Transmission Date: 20190205
  Serious: Yes (Hospitalization)
  Sender: FDA-Public Use
  Company Number: None

PATIENT
  Age: 58 Year
  Sex: Male

DRUGS (2)
  1. IOHEXOL [Suspect]
     Active Substance: IOHEXOL
     Indication: DIAGNOSTIC PROCEDURE
     Route: 042
     Dates: start: 20181116, end: 20181116
  2. LISINOPRIL. [Suspect]
     Active Substance: LISINOPRIL
     Indication: HYPERTENSION
     Route: 048
     Dates: start: 20151209, end: 20181119

REACTIONS (3)
  - Acute kidney injury [None]
  - Renal tubular necrosis [None]
  - Nephropathy toxic [None]

NARRATIVE: CASE EVENT DATE: 20181116
